FAERS Safety Report 10746011 (Version 2)
Quarter: 2015Q1

REPORT INFORMATION
  Report Type: Spontaneous
  Country: ZA (occurrence: ZA)
  Receive Date: 20150128
  Receipt Date: 20150130
  Transmission Date: 20150721
  Serious: Yes (Other)
  Sender: FDA-Public Use
  Company Number: ZA-009507513-1410ZAF007159

PATIENT
  Sex: Female

DRUGS (1)
  1. IMPLANON [Suspect]
     Active Substance: ETONOGESTREL
     Dosage: UNK
     Route: 059

REACTIONS (5)
  - Device deployment issue [Recovered/Resolved]
  - General anaesthesia [Unknown]
  - Device dislocation [Recovered/Resolved]
  - Device embolisation [Unknown]
  - Surgery [Unknown]
